FAERS Safety Report 5909888-6 (Version None)
Quarter: 2008Q4

REPORT INFORMATION
  Report Type: 
  Country: None (occurrence: None)
  Receive Date: 20081007
  Receipt Date: 20080926
  Transmission Date: 20090506
  Serious: Yes (Other)
  Sender: FDA-Public Use
  Company Number: SE-BAXTER-2007BH008244

PATIENT
  Age: 19 Month
  Sex: Male

DRUGS (10)
  1. GAMMAGARD LIQUID [Suspect]
     Indication: HYPOGAMMAGLOBULINAEMIA
     Route: 042
     Dates: start: 20070927, end: 20070927
  2. GAMMAGARD LIQUID [Suspect]
     Route: 042
     Dates: start: 20071010, end: 20071010
  3. PROGRAF [Concomitant]
     Indication: GRAFT VERSUS HOST DISEASE
  4. RAPAMUNE [Concomitant]
     Indication: GRAFT VERSUS HOST DISEASE
  5. PREDNISOLONE [Concomitant]
  6. BACTRIM [Concomitant]
  7. DIFLUCAN [Concomitant]
  8. URSO FALK [Concomitant]
  9. LANSOPRAZOLE [Concomitant]
  10. NIFEHEXAL [Concomitant]

REACTIONS (4)
  - ERYTHEMA [None]
  - HYPERTENSION [None]
  - TACHYPNOEA [None]
  - URTICARIA [None]
